FAERS Safety Report 9066128 (Version 3)
Quarter: 2013Q1

REPORT INFORMATION
  Report Type: Spontaneous
  Country: JP (occurrence: JP)
  Receive Date: 20130214
  Receipt Date: 20130315
  Transmission Date: 20140127
  Serious: Yes (Death, Other)
  Sender: FDA-Public Use
  Company Number: PHHY2013JP014446

PATIENT
  Age: 61 Year
  Sex: Female
  Weight: 53 kg

DRUGS (5)
  1. NEORAL [Suspect]
     Indication: DERMATOMYOSITIS
     Route: 048
  2. PREDNISOLONE [Suspect]
     Dosage: 30 MG, UNK
     Route: 048
  3. AZATHIOPRINE [Suspect]
     Route: 048
  4. CYCLOPHOSPHAMIDE [Suspect]
     Indication: DERMATOMYOSITIS
     Route: 042
  5. CORTICOSTEROID NOS [Suspect]

REACTIONS (5)
  - Thrombotic thrombocytopenic purpura [Fatal]
  - Cytomegalovirus viraemia [Fatal]
  - Red cell fragmentation syndrome [Unknown]
  - Haemolytic anaemia [Unknown]
  - Renal disorder [Unknown]
